FAERS Safety Report 8622056-2 (Version None)
Quarter: 2012Q3

REPORT INFORMATION
  Report Type: 
  Country: None (occurrence: None)
  Receive Date: 20120825
  Receipt Date: 20110323
  Transmission Date: 20120928
  Serious: Yes (Death, Disabling)
  Sender: FDA-Public Use
  Company Number: US-ROCHE-1094315

PATIENT

DRUGS (4)
  1. TARCEVA [Suspect]
     Indication: BRAIN NEOPLASM MALIGNANT
  2. TARCEVA [Suspect]
  3. XELODA [Suspect]
     Indication: BRAIN NEOPLASM MALIGNANT
  4. XELODA [Suspect]

REACTIONS (2)
  - ILL-DEFINED DISORDER [None]
  - DEATH [None]
